FAERS Safety Report 22191918 (Version 1)
Quarter: 2023Q2

REPORT INFORMATION
  Report Type: Report from Study
  Country: US (occurrence: US)
  Receive Date: 20230410
  Receipt Date: 20230410
  Transmission Date: 20230722
  Serious: Yes (Other)
  Sender: FDA-Public Use
  Company Number: US-HORIZON THERAPEUTICS-HZN-2023-000320

PATIENT

DRUGS (5)
  1. KRYSTEXXA [Suspect]
     Active Substance: PEGLOTICASE
     Indication: Product used for unknown indication
     Dosage: FIRST INFUSION
     Route: 042
     Dates: start: 20221213
  2. KRYSTEXXA [Suspect]
     Active Substance: PEGLOTICASE
     Dosage: 2ND INFUSION
     Route: 042
     Dates: start: 20221228
  3. KRYSTEXXA [Suspect]
     Active Substance: PEGLOTICASE
     Dosage: UNKNOWN INFUSION
     Route: 042
     Dates: start: 20230128
  4. KRYSTEXXA [Suspect]
     Active Substance: PEGLOTICASE
     Dosage: UNKNOWN INFUSION
     Route: 042
     Dates: start: 20230209
  5. KRYSTEXXA [Suspect]
     Active Substance: PEGLOTICASE
     Dosage: UNK, INFUSION
     Route: 042
     Dates: start: 20230320

REACTIONS (5)
  - Oxygen saturation decreased [Unknown]
  - Arthralgia [Unknown]
  - Gout [Unknown]
  - Influenza [Unknown]
  - Restlessness [Unknown]

NARRATIVE: CASE EVENT DATE: 20230320
